FAERS Safety Report 4945673-X (Version None)
Quarter: 2006Q1

REPORT INFORMATION
  Report Type: 
  Country: None (occurrence: None)
  Receive Date: 20060117
  Receipt Date: 20050322
  Transmission Date: 20060701
  Serious: Yes (Hospitalization)
  Sender: FDA-Public Use
  Company Number: A03200401643

PATIENT
  Age: 77 Year
  Sex: Female

DRUGS (7)
  1. PLAVIX [Suspect]
     Indication: CEREBROVASCULAR ACCIDENT PROPHYLAXIS
     Dosage: 75 MG QD ORAL
     Route: 048
     Dates: start: 20031008
  2. LEVOTHYROXINE SODIUM [Concomitant]
  3. NADOLOL [Concomitant]
  4. OLANZAPINE [Concomitant]
  5. FAMOTIDINE [Concomitant]
  6. PAROXETINE HYDROCHLORIDE [Concomitant]
  7. ATORVASTATIN [Concomitant]

REACTIONS (21)
  - ARTHRALGIA [None]
  - ASTHENIA [None]
  - BLISTER [None]
  - BRONCHITIS [None]
  - CHEST PAIN [None]
  - CONFUSIONAL STATE [None]
  - COUGH [None]
  - DIARRHOEA [None]
  - DIZZINESS [None]
  - DRY MOUTH [None]
  - DYSPNOEA [None]
  - ERUCTATION [None]
  - EYE PRURITUS [None]
  - HAEMOGLOBIN DECREASED [None]
  - HAEMORRHAGE [None]
  - ILL-DEFINED DISORDER [None]
  - MUSCLE SPASMS [None]
  - NAUSEA [None]
  - PYREXIA [None]
  - SKIN DISCOLOURATION [None]
  - SWELLING FACE [None]
